FAERS Safety Report 17247332 (Version 3)
Quarter: 2020Q1

REPORT INFORMATION
  Report Type: Spontaneous
  Country: US (occurrence: US)
  Receive Date: 20200108
  Receipt Date: 20200227
  Transmission Date: 20200409
  Serious: No
  Sender: FDA-Public Use
  Company Number: US-PFIZER INC-2020005746

PATIENT
  Sex: Female

DRUGS (2)
  1. ADVIL LIQUI-GELS [Suspect]
     Active Substance: IBUPROFEN
     Indication: ARTHRITIS
     Dosage: 200 MG, UNK (1 CAPSULE PUT IN MOUTH AT A TIME)
     Route: 048
  2. ADVIL LIQUI-GELS [Suspect]
     Active Substance: IBUPROFEN
     Indication: PAIN

REACTIONS (6)
  - Hypoaesthesia oral [Recovered/Resolved]
  - Oral pain [Recovered/Resolved]
  - Eye irritation [Recovered/Resolved]
  - Product taste abnormal [Recovered/Resolved]
  - Oral discomfort [Recovered/Resolved]
  - Product physical issue [Recovered/Resolved]

NARRATIVE: CASE EVENT DATE: 20200104
